FAERS Safety Report 19275992 (Version 1)
Quarter: 2021Q2

REPORT INFORMATION
  Report Type: Spontaneous
  Country: MX (occurrence: MX)
  Receive Date: 20210519
  Receipt Date: 20210519
  Transmission Date: 20210717
  Serious: Yes (Other)
  Sender: FDA-Public Use
  Company Number: MX-FRESENIUS KABI-FK202105096

PATIENT
  Age: 52 Year
  Sex: Male

DRUGS (2)
  1. AZITHROMYCIN ANHYDROUS. [Concomitant]
     Active Substance: AZITHROMYCIN ANHYDROUS
     Indication: COVID-19
     Route: 065
  2. METHYLPREDNISOLONE (MANUFACTURER UNKNOWN) [Suspect]
     Active Substance: METHYLPREDNISOLONE
     Indication: COVID-19
     Route: 042

REACTIONS (1)
  - Papillary muscle rupture [Recovered/Resolved]
